FAERS Safety Report 8557891-2 (Version None)
Quarter: 2012Q3

REPORT INFORMATION
  Report Type: 
  Country: None (occurrence: None)
  Receive Date: 20120801
  Receipt Date: 20120717
  Transmission Date: 20120928
  Serious: No
  Sender: FDA-Public Use
  Company Number: US-ASTRAZENECA-2012SE50416

PATIENT

DRUGS (1)
  1. SYMBICORT [Suspect]
     Dosage: 160MCG/4.5MCG UNKNWN
     Route: 055

REACTIONS (2)
  - DRUG EFFECT DECREASED [None]
  - ASTHMA [None]
